FAERS Safety Report 22086171 (Version 2)
Quarter: 2023Q2

REPORT INFORMATION
  Report Type: Spontaneous
  Country: US (occurrence: US)
  Receive Date: 20230310
  Receipt Date: 20230404
  Transmission Date: 20230722
  Serious: No
  Sender: FDA-Public Use
  Company Number: US-GALDERMA-US2023002547

PATIENT

DRUGS (10)
  1. PROACTIV MD ADAPALENE ACNE TREATMENT [Suspect]
     Active Substance: ADAPALENE
     Indication: Acne
     Dosage: 1 DOSAGE FORM, QD, ONCE EVERY DAY
     Route: 061
     Dates: start: 202302, end: 202302
  2. PROACTIV MD ADAPALENE ACNE TREATMENT [Suspect]
     Active Substance: ADAPALENE
     Indication: Scar
  3. Proactiv MD Ultra Gentle Cleanser [Concomitant]
     Indication: Acne
     Dosage: 1 DOSAGE FORM, BID, 2 OR MORE TIMES A DAY
     Route: 061
     Dates: start: 202302, end: 202302
  4. Proactiv MD Ultra Gentle Cleanser [Concomitant]
     Indication: Scar
  5. Proactiv MD Ultra Hydrating Moisturizer [Concomitant]
     Indication: Acne
     Dosage: 1 DOSAGE FORM, BID, 2 OR MORE TIMES A DAY
     Route: 061
     Dates: start: 202302, end: 202302
  6. Proactiv MD Ultra Hydrating Moisturizer [Concomitant]
     Indication: Scar
  7. Proactiv Post Acne Dark Mark Relief [Concomitant]
     Indication: Acne
     Dosage: 1 DOSAGE FORM, BID, 2 OR MORE TIMES A DAY
     Route: 061
     Dates: start: 202302, end: 202302
  8. Proactiv Post Acne Dark Mark Relief [Concomitant]
     Indication: Scar
  9. Proactiv Post Acne Scar Gel [Concomitant]
     Indication: Acne
     Dosage: 1 DOSAGE FORM, BID, 2 OR MORE TIMES A DAY
     Route: 061
     Dates: start: 202302, end: 202302
  10. Proactiv Post Acne Scar Gel [Concomitant]
     Indication: Scar

REACTIONS (1)
  - Erythema [Recovering/Resolving]

NARRATIVE: CASE EVENT DATE: 20230201
